FAERS Safety Report 11080918 (Version 6)
Quarter: 2016Q1

REPORT INFORMATION
  Report Type: Spontaneous
  Country: JP (occurrence: JP)
  Receive Date: 20150501
  Receipt Date: 20160304
  Transmission Date: 20160525
  Serious: Yes (Other)
  Sender: FDA-Public Use
  Company Number: JP-ROCHE-1569664

PATIENT
  Age: 42 Year
  Sex: Female
  Weight: 54 kg

DRUGS (2)
  1. ACTEMRA [Suspect]
     Active Substance: TOCILIZUMAB
     Indication: RHEUMATOID ARTHRITIS
     Dosage: MOST RECENT DOSE ON 28/FEB/2014
     Route: 041
     Dates: start: 20121205, end: 20140228
  2. PREDNISOLONE. [Concomitant]
     Active Substance: PREDNISOLONE
     Indication: RHEUMATOID ARTHRITIS
     Route: 048
     Dates: start: 201203

REACTIONS (5)
  - Abortion missed [Unknown]
  - Haemorrhage [Recovering/Resolving]
  - Abdominal pain lower [Recovering/Resolving]
  - Maternal exposure during pregnancy [Unknown]
  - Benign hydatidiform mole [Unknown]

NARRATIVE: CASE EVENT DATE: 20140317
